FAERS Safety Report 7795934-4 (Version None)
Quarter: 2011Q4

REPORT INFORMATION
  Report Type: 
  Country: None (occurrence: None)
  Receive Date: 20111004
  Receipt Date: 20110922
  Transmission Date: 20120403
  Serious: Yes (Hospitalization)
  Sender: FDA-Public Use
  Company Number: US-CELGENEUS-163-21880-11080306

PATIENT
  Sex: Female
  Weight: 78.088 kg

DRUGS (6)
  1. REVLIMID [Suspect]
     Indication: MULTIPLE MYELOMA
     Dosage: 25 MILLIGRAM
     Route: 048
     Dates: start: 20101116, end: 20110701
  2. PROCARDIA [Concomitant]
     Route: 065
  3. TOPROL-XL [Concomitant]
     Route: 065
  4. DURAGESIC-100 [Concomitant]
     Route: 065
  5. LORTAB [Concomitant]
     Route: 065
  6. MORPHINE SULFATE [Concomitant]
     Route: 065

REACTIONS (2)
  - RENAL FAILURE [None]
  - ABDOMINAL DISTENSION [None]
